FAERS Safety Report 16481659 (Version 5)
Quarter: 2019Q4

REPORT INFORMATION
  Report Type: Report from Study
  Country: None (occurrence: AU)
  Receive Date: 20190627
  Receipt Date: 20191010
  Transmission Date: 20200122
  Serious: Yes (Death, Disabling, Other)
  Sender: FDA-Public Use
  Company Number: AU-ABBVIE-19S-008-2832197-00

PATIENT
  Age: 73 Year
  Sex: Female

DRUGS (2)
  1. DUODOPA [Suspect]
     Active Substance: CARBIDOPA\LEVODOPA
     Dosage: 20 MG/ML 5 MG/ML
     Route: 050
  2. DUODOPA [Suspect]
     Active Substance: CARBIDOPA\LEVODOPA
     Indication: PARKINSON^S DISEASE
     Dosage: 100ML GEL CASSETTE?6ML IN MORNING, 3.6MLS/HR 0600-2100,2.5MLS/HR 2100-0700
     Route: 050
     Dates: start: 20171213

REACTIONS (1)
  - Palliative care [Fatal]

NARRATIVE: CASE EVENT DATE: 20190621
